FAERS Safety Report 14912498 (Version 6)
Quarter: 2020Q2

REPORT INFORMATION
  Report Type: Report from Study
  Country: PL (occurrence: PL)
  Receive Date: 20180518
  Receipt Date: 20200511
  Transmission Date: 20200713
  Serious: Yes (Hospitalization)
  Sender: FDA-Public Use
  Company Number: PL-EISAI MEDICAL RESEARCH-EC-2018-038351

PATIENT
  Age: 64 Year
  Sex: Male
  Weight: 82 kg

DRUGS (12)
  1. EVEROLIMUS. [Suspect]
     Active Substance: EVEROLIMUS
     Indication: RENAL CELL CARCINOMA
     Route: 048
     Dates: start: 20180315, end: 20180404
  2. ATORIS [Concomitant]
     Active Substance: ATORVASTATIN CALCIUM
  3. LECALPIN [Concomitant]
  4. VANATEX HCT [Concomitant]
  5. EVEROLIMUS. [Suspect]
     Active Substance: EVEROLIMUS
     Route: 048
     Dates: start: 20180718, end: 20181030
  6. CONTROLOC [Concomitant]
     Active Substance: PANTOPRAZOLE SODIUM
  7. NEBICARD [Concomitant]
     Active Substance: NEBIVOLOL HYDROCHLORIDE
  8. LENVATINIB [Suspect]
     Active Substance: LENVATINIB
     Indication: RENAL CELL CARCINOMA
     Route: 048
     Dates: start: 20180315, end: 20180404
  9. LENVATINIB [Suspect]
     Active Substance: LENVATINIB
     Route: 048
     Dates: start: 20180427, end: 20180502
  10. EVEROLIMUS. [Suspect]
     Active Substance: EVEROLIMUS
     Route: 048
     Dates: start: 20180427, end: 20180502
  11. POLOCARD [Concomitant]
     Active Substance: ASPIRIN
  12. LENVATINIB [Suspect]
     Active Substance: LENVATINIB
     Route: 048
     Dates: start: 20180718, end: 20181030

REACTIONS (2)
  - Pancreatitis acute [Recovered/Resolved]
  - Hypophosphataemia [Recovered/Resolved with Sequelae]

NARRATIVE: CASE EVENT DATE: 20180419
